FAERS Safety Report 5626949-X (Version None)
Quarter: 2008Q1

REPORT INFORMATION
  Report Type: 
  Country: None (occurrence: None)
  Receive Date: 20080212
  Receipt Date: 20080130
  Transmission Date: 20080703
  Serious: Yes (Other)
  Sender: FDA-Public Use
  Company Number: CHNY2008JP00754

PATIENT
  Age: 77 Year
  Sex: Male

DRUGS (4)
  1. NICOTINE [Suspect]
     Indication: SMOKING CESSATION THERAPY
     Dosage: 21 MG, QD, TRANSDERMAL
     Route: 062
     Dates: start: 20080124, end: 20080130
  2. ANTIHYPERTENSIVES (NO INGREDIENTS/SUBSTANCES) [Concomitant]
  3. HYPNOTICS AND SEDATIVES (NO INGREDIENTS/SUBSTANCES) [Concomitant]
  4. ANXIOLYTICS (NO INGREDIENTS/SUBSTANCES) [Concomitant]

REACTIONS (4)
  - DIZZINESS [None]
  - DYSSTASIA [None]
  - NAUSEA [None]
  - VOMITING [None]
